FAERS Safety Report 16761484 (Version 4)
Quarter: 2021Q3

REPORT INFORMATION
  Report Type: Report from Study
  Country: None (occurrence: US)
  Receive Date: 20190830
  Receipt Date: 20210730
  Transmission Date: 20211014
  Serious: No
  Sender: FDA-Public Use
  Company Number: US-ABBVIE-19K-163-2886707-00

PATIENT
  Sex: Female
  Weight: 143.01 kg

DRUGS (2)
  1. COVID?19 VACCINE [Concomitant]
     Indication: COVID-19 IMMUNISATION
     Dosage: JOHNSON AND JOHNSON
     Route: 030
     Dates: start: 202104, end: 202104
  2. ORILISSA [Suspect]
     Active Substance: ELAGOLIX SODIUM
     Indication: ENDOMETRIOSIS
     Route: 048
     Dates: start: 2019, end: 2019

REACTIONS (22)
  - Pain in extremity [Not Recovered/Not Resolved]
  - Abdominal pain [Not Recovered/Not Resolved]
  - Increased tendency to bruise [Not Recovered/Not Resolved]
  - Drug ineffective [Not Recovered/Not Resolved]
  - Fatigue [Not Recovered/Not Resolved]
  - Inadequate analgesia [Unknown]
  - Adverse drug reaction [Unknown]
  - Arthralgia [Recovering/Resolving]
  - Nephrolithiasis [Not Recovered/Not Resolved]
  - Chromaturia [Not Recovered/Not Resolved]
  - Yellow skin [Not Recovered/Not Resolved]
  - Hepatic enzyme increased [Recovering/Resolving]
  - Thirst [Not Recovered/Not Resolved]
  - Tearfulness [Not Recovered/Not Resolved]
  - Nausea [Recovering/Resolving]
  - Myalgia [Recovering/Resolving]
  - Bilirubin urine present [Unknown]
  - Dizziness [Not Recovered/Not Resolved]
  - Mood swings [Not Recovered/Not Resolved]
  - Fibromyalgia [Not Recovered/Not Resolved]
  - Flank pain [Not Recovered/Not Resolved]
  - Back pain [Not Recovered/Not Resolved]

NARRATIVE: CASE EVENT DATE: 2019
